FAERS Safety Report 5240858-X (Version None)
Quarter: 2007Q1

REPORT INFORMATION
  Report Type: 
  Country: None (occurrence: None)
  Receive Date: 20061208
  Receipt Date: 20050504
  Transmission Date: 20070707
  Serious: Yes (Other)
  Sender: FDA-Public Use
  Company Number: 2005UW06952

PATIENT
  Age: 72 Year
  Sex: Male

DRUGS (2)
  1. CRESTOR [Suspect]
     Dosage: 10 MG PO
     Route: 048
     Dates: start: 20050201
  2. TOPROL-XL [Concomitant]

REACTIONS (3)
  - FULL BLOOD COUNT DECREASED [None]
  - NEUTROPENIA [None]
  - THROMBOCYTOPENIA [None]
